FAERS Safety Report 16704322 (Version 3)
Quarter: 2019Q3

REPORT INFORMATION
  Report Type: Spontaneous
  Country: IT (occurrence: IT)
  Receive Date: 20190814
  Receipt Date: 20190916
  Transmission Date: 20191004
  Serious: Yes (Hospitalization)
  Sender: FDA-Public Use
  Company Number: PHHY2019IT187682

PATIENT
  Age: 26 Year
  Sex: Male

DRUGS (2)
  1. TRIAZOLAM. [Suspect]
     Active Substance: TRIAZOLAM
     Indication: PRODUCT USED FOR UNKNOWN INDICATION
     Dosage: 4 MG, QD
     Route: 065
  2. ZOLPIDEM [Suspect]
     Active Substance: ZOLPIDEM TARTRATE
     Indication: PRODUCT USED FOR UNKNOWN INDICATION
     Dosage: 600 MG, QD
     Route: 065

REACTIONS (7)
  - Gamma-glutamyltransferase increased [Unknown]
  - Intentional overdose [Unknown]
  - Overdose [Unknown]
  - Alanine aminotransferase increased [Unknown]
  - Hypertransaminasaemia [Unknown]
  - Drug dependence [Unknown]
  - Drug abuse [Unknown]
